FAERS Safety Report 16544640 (Version 2)
Quarter: 2019Q3

REPORT INFORMATION
  Report Type: Spontaneous
  Country: US (occurrence: US)
  Receive Date: 20190709
  Receipt Date: 20190718
  Transmission Date: 20191004
  Serious: Yes (Hospitalization, Other)
  Sender: FDA-Public Use
  Company Number: US-BRISTOL-MYERS SQUIBB COMPANY-BMS-2019-064380

PATIENT
  Age: 81 Year
  Sex: Female
  Weight: 78.92 kg

DRUGS (1)
  1. DROXIA [Suspect]
     Active Substance: HYDROXYUREA
     Indication: POLYCYTHAEMIA VERA
     Dosage: 500 MILLIGRAM, QD
     Route: 048
     Dates: start: 2016

REACTIONS (7)
  - Ephelides [Unknown]
  - Fatigue [Unknown]
  - Off label use [Unknown]
  - Pruritus [Unknown]
  - Pulmonary embolism [Unknown]
  - Type 2 diabetes mellitus [Unknown]
  - Blister [Unknown]

NARRATIVE: CASE EVENT DATE: 201802
